FAERS Safety Report 7056060 (Version 3)
Quarter: 2013Q3

REPORT INFORMATION
  Report Type: Report from Study
  Country: CA (occurrence: CA)
  Receive Date: 20090721
  Receipt Date: 20130802
  Transmission Date: 20140515
  Serious: Yes (Other)
  Sender: FDA-Public Use
  Company Number: PHHY2009CA28461

PATIENT
  Sex: Male

DRUGS (7)
  1. CLOZARIL [Suspect]
     Indication: SCHIZOPHRENIA
     Dosage: 300 MG, HS
     Route: 048
     Dates: start: 19930108
  2. ATENOLOL [Concomitant]
  3. SYNTHROID [Concomitant]
  4. RANITIDIN ^ALIUD PHARMA^ [Concomitant]
  5. CALCIUM [Concomitant]
  6. ATIVAN [Concomitant]
  7. VITAMIN D [Concomitant]

REACTIONS (9)
  - Nephropathy toxic [Recovering/Resolving]
  - Toxicity to various agents [Recovering/Resolving]
  - Hypothyroidism [Unknown]
  - Renal failure [Recovering/Resolving]
  - Hypertension [Unknown]
  - Neutropenia [Unknown]
  - Thrombocytopenia [Unknown]
  - Anaemia [Unknown]
  - Schizophrenia [Unknown]
